FAERS Safety Report 8489224-4 (Version None)
Quarter: 2012Q3

REPORT INFORMATION
  Report Type: 
  Country: None (occurrence: None)
  Receive Date: 20120705
  Receipt Date: 20120627
  Transmission Date: 20120928
  Serious: Yes (Hospitalization)
  Sender: FDA-Public Use
  Company Number: US-B.I. PHARMACEUTICALS,INC./RIDGEFIELD-2012-BP-12950BP

PATIENT
  Age: 83 Year
  Sex: Male

DRUGS (15)
  1. PRADAXA [Suspect]
     Indication: ATRIAL FIBRILLATION
     Dosage: 300 MG
  2. ALLEGRA [Concomitant]
     Route: 048
  3. POTASSIUM CHLORIDE [Concomitant]
     Dosage: 20 MEQ
     Route: 048
  4. LASIX [Concomitant]
  5. OXYGEN [Concomitant]
  6. LIPITOR [Concomitant]
  7. OXYCODONE HCL [Concomitant]
  8. PRILOSEC [Concomitant]
  9. LOSARTAN POTASSIUM [Concomitant]
  10. METOPROLOL SUCCINATE [Concomitant]
  11. NASONEX [Concomitant]
  12. NEURONTIN [Concomitant]
  13. VOLTAREN [Concomitant]
  14. PRADAXA [Suspect]
  15. ENABLEX [Concomitant]
     Route: 048

REACTIONS (2)
  - COLONIC POLYP [None]
  - DIVERTICULITIS INTESTINAL HAEMORRHAGIC [None]
